FAERS Safety Report 5398954-2 (Version None)
Quarter: 2007Q3

REPORT INFORMATION
  Report Type: 
  Country: None (occurrence: None)
  Receive Date: 20070724
  Receipt Date: 20070724
  Transmission Date: 20080115
  Serious: Yes (Other)
  Sender: FDA-Public Use
  Company Number: None

PATIENT
  Age: 56 Year
  Sex: Female
  Weight: 68.0396 kg

DRUGS (1)
  1. LEVAQUIN [Suspect]
     Indication: ABDOMINAL PAIN LOWER
     Dosage: 500 MG OD PO
     Route: 048
     Dates: start: 20070719, end: 20070720

REACTIONS (19)
  - ABASIA [None]
  - ABDOMINAL DISTENSION [None]
  - ANOREXIA [None]
  - ASTHENIA [None]
  - CHEST PAIN [None]
  - CHILLS [None]
  - DIZZINESS [None]
  - DRUG TOXICITY [None]
  - FATIGUE [None]
  - FEELING ABNORMAL [None]
  - GASTROINTESTINAL PAIN [None]
  - HEADACHE [None]
  - INITIAL INSOMNIA [None]
  - MUSCLE SPASMS [None]
  - PARAESTHESIA [None]
  - PRURITUS [None]
  - SINUS TACHYCARDIA [None]
  - TREMOR [None]
  - VOMITING PROJECTILE [None]
